FAERS Safety Report 8488034 (Version 2)
Quarter: 2013Q1

REPORT INFORMATION
  Report Type: Spontaneous
  Country: US (occurrence: US)
  Receive Date: 20120402
  Receipt Date: 20130226
  Transmission Date: 20140127
  Serious: No
  Sender: FDA-Public Use
  Company Number: US-PFIZER INC-2012080315

PATIENT
  Age: 57 Year
  Sex: Female
  Weight: 72.56 kg

DRUGS (3)
  1. GEODON [Suspect]
     Indication: BIPOLAR DISORDER
     Dosage: 60 MG, 1X/DAY
  2. IMITREX [Suspect]
     Indication: HEADACHE
     Dosage: 100 MG, AS NEEDED
     Dates: start: 2012
  3. ALEVE [Suspect]
     Indication: HEADACHE
     Dosage: 220 MG, 4X/DAY
     Dates: start: 2012

REACTIONS (3)
  - Alopecia [Unknown]
  - Blood calcium increased [Unknown]
  - Migraine [Unknown]
